FAERS Safety Report 4607783-6 (Version None)
Quarter: 2005Q1

REPORT INFORMATION
  Report Type: 
  Country: None (occurrence: None)
  Receive Date: 20050314
  Receipt Date: 20050310
  Transmission Date: 20050727
  Serious: Yes (Hospitalization)
  Sender: FDA-Public Use
  Company Number: FR-GLAXOSMITHKLINE-B0374353A

PATIENT
  Age: 93 Year
  Sex: Female

DRUGS (10)
  1. CLAMOXYL [Suspect]
     Indication: ILL-DEFINED DISORDER
     Dosage: 2G PER DAY
     Route: 030
     Dates: start: 20050210, end: 20050217
  2. GENTALLINE [Suspect]
     Indication: ILL-DEFINED DISORDER
     Dosage: 1UNIT PER DAY
     Route: 042
     Dates: start: 20050216, end: 20050217
  3. PREVISCAN [Suspect]
     Indication: ILL-DEFINED DISORDER
     Dosage: 5MG PER DAY
     Route: 048
     Dates: start: 20040415, end: 20050217
  4. HEMIGOXINE NATIVELLE [Concomitant]
     Dosage: 1UNIT PER DAY
     Route: 048
  5. LASILIX [Concomitant]
     Dosage: 1UNIT PER DAY
     Route: 048
  6. KARDEGIC [Concomitant]
     Dosage: 1UNIT PER DAY
     Route: 048
     Dates: start: 20041126, end: 20050217
  7. ZESTRIL [Concomitant]
     Route: 065
  8. XANAX [Concomitant]
     Route: 065
  9. DIAMICRON [Concomitant]
     Route: 065
  10. TENORMIN [Concomitant]
     Route: 065

REACTIONS (4)
  - ANAEMIA [None]
  - DRUG INTERACTION [None]
  - MELAENA [None]
  - OVERDOSE [None]
